FAERS Safety Report 6011038-5 (Version None)
Quarter: 2008Q4

REPORT INFORMATION
  Report Type: 
  Country: None (occurrence: None)
  Receive Date: 20081218
  Receipt Date: 20081209
  Transmission Date: 20090506
  Serious: Yes (Life-Threatening, Hospitalization, Disabling)
  Sender: FDA-Public Use
  Company Number: GB-PFIZER INC-2008152644

PATIENT

DRUGS (3)
  1. PHENYTOIN AND PHENYTOIN SODIUM [Suspect]
     Indication: STATUS EPILEPTICUS
     Route: 042
     Dates: start: 20081117, end: 20081117
  2. CARBAMAZEPINE [Concomitant]
  3. VALPROATE SODIUM [Concomitant]

REACTIONS (1)
  - PURPLE GLOVE SYNDROME [None]
